FAERS Safety Report 8500441-7 (Version None)
Quarter: 2012Q3

REPORT INFORMATION
  Report Type: 
  Country: None (occurrence: None)
  Receive Date: 20120710
  Receipt Date: 20120703
  Transmission Date: 20120928
  Serious: Yes (Death, Hospitalization)
  Sender: FDA-Public Use
  Company Number: JP-GLAXOSMITHKLINE-B0797993A

PATIENT
  Sex: Female

DRUGS (2)
  1. XELODA [Suspect]
     Indication: PRODUCT USED FOR UNKNOWN INDICATION
     Route: 048
  2. TYKERB [Suspect]
     Indication: BREAST CANCER
     Dosage: 5IUAX PER DAY
     Route: 048
     Dates: start: 20110901, end: 20120401

REACTIONS (3)
  - ARRHYTHMIA [None]
  - MITRAL VALVE INCOMPETENCE [None]
  - CARDIAC FAILURE [None]
